FAERS Safety Report 23992481 (Version 1)
Quarter: 2024Q2

REPORT INFORMATION
  Report Type: Other
  Country: US (occurrence: US)
  Receive Date: 20240620
  Receipt Date: 20240620
  Transmission Date: 20240715
  Serious: No
  Sender: FDA-Public Use
  Company Number: US-APOTEX-2024AP007190

PATIENT
  Age: 33 Year
  Sex: Female

DRUGS (10)
  1. EMTRICITABINE\TENOFOVIR [Suspect]
     Active Substance: EMTRICITABINE\TENOFOVIR
     Indication: Antiretroviral therapy
     Dosage: UNK, TOTAL DAILY DOSE- 1 (UNIT UNSPECIFIED), TREATMENT DURATION- 8 WEEKS
     Route: 048
  2. DOLUTEGRAVIR [Suspect]
     Active Substance: DOLUTEGRAVIR
     Indication: Antiretroviral therapy
     Dosage: TOTAL DAILY DOSE- 1 (UNIT UNSPECIFIED), TREATMENT DURATION- 2 WEEK (COURSE 1)
     Route: 048
  3. DOLUTEGRAVIR [Suspect]
     Active Substance: DOLUTEGRAVIR
     Dosage: TOTAL DAILY DOSE- 1 (UNIT UNSPECIFIED) (COURSE 2)
     Route: 048
     Dates: start: 2023
  4. DOLUTEGRAVIR [Suspect]
     Active Substance: DOLUTEGRAVIR
     Dosage: TOTAL DAILY DOSE- 1 (UNIT UNSPECIFIED) (COURSE 3)
     Route: 048
     Dates: start: 2023
  5. BICTEGRAVIR\EMTRICITABINE\TENOFOVIR ALAFENAMIDE [Suspect]
     Active Substance: BICTEGRAVIR\EMTRICITABINE\TENOFOVIR ALAFENAMIDE
     Indication: Antiretroviral therapy
     Dosage: TOTAL DAILY DOSE- 1 (UNIT UNSPECIFIED), TREATMENT DURATION- 11 WEEK (COURSE 1)
     Route: 048
  6. BICTEGRAVIR\EMTRICITABINE\TENOFOVIR ALAFENAMIDE [Suspect]
     Active Substance: BICTEGRAVIR\EMTRICITABINE\TENOFOVIR ALAFENAMIDE
     Dosage: TOTAL DAILY DOSE- 1 (UNIT UNSPECIFIED), TREATMENT DURATION- 11 WEEK (COURSE 2)
     Route: 048
  7. EMTRICITABINE\TENOFOVIR [Suspect]
     Active Substance: EMTRICITABINE\TENOFOVIR
     Indication: Antiretroviral therapy
     Dosage: TOTAL DAILY DOSE- 1 (UNIT UNSPECIFIED), TREATMENT DURATION- 8 WEEK (COURSE 1)
     Route: 048
     Dates: start: 2023
  8. EMTRICITABINE\TENOFOVIR [Suspect]
     Active Substance: EMTRICITABINE\TENOFOVIR
     Dosage: TOTAL DAILY DOSE- 2 (UNIT UNSPECIFIED), (COURSE 2)
     Route: 048
     Dates: start: 2023
  9. ZIDOVUDINE [Suspect]
     Active Substance: ZIDOVUDINE
     Indication: Antiretroviral therapy
     Dosage: TOTAL DAILY DOSE- 2 (UNIT UNSPECIFIED), TREATMENT DURATION- 1 WEEK (COURSE 1)
     Route: 042
     Dates: start: 2023
  10. ZIDOVUDINE [Suspect]
     Active Substance: ZIDOVUDINE
     Dosage: TOTAL DAILY DOSE- 1 (UNIT UNSPECIFIED), TREATMENT DURATION- 1 WEEK (COURSE 2)
     Route: 042
     Dates: start: 2023

REACTIONS (1)
  - Maternal exposure during pregnancy [Unknown]

NARRATIVE: CASE EVENT DATE: 20220101
